FAERS Safety Report 25499392 (Version 1)
Quarter: 2025Q3

REPORT INFORMATION
  Report Type: Spontaneous
  Country: US (occurrence: US)
  Receive Date: 20250701
  Receipt Date: 20250701
  Transmission Date: 20251021
  Serious: Yes (Death, Hospitalization)
  Sender: PFIZER
  Company Number: US-PFIZER INC-PV202500075384

PATIENT
  Age: 31 Year
  Sex: Male

DRUGS (2)
  1. CYTARABINE [Suspect]
     Active Substance: CYTARABINE
     Indication: Acute myeloid leukaemia
     Dosage: UNK, 2X/DAY (3 G/M2, HIGH DOSE, EVERY 12 HOURS FOR EIGHT DOSES ON DAYS 1 THROUGH 4)
  2. MITOXANTRONE [Suspect]
     Active Substance: MITOXANTRONE HYDROCHLORIDE
     Indication: Acute myeloid leukaemia
     Dosage: 10 MG/M2, DAILY (ON DAYS 2 THROUGH 5)

REACTIONS (1)
  - Eccrine squamous syringometaplasia [Fatal]
